FAERS Safety Report 24569762 (Version 1)
Quarter: 2024Q4

REPORT INFORMATION
  Report Type: Spontaneous
  Country: US (occurrence: None)
  Receive Date: 20241031
  Receipt Date: 20241031
  Transmission Date: 20250114
  Serious: Yes (unspecified)
  Sender: Public
  Company Number: None

PATIENT
  Age: 33 Year
  Sex: Female
  Weight: 112.5 kg

DRUGS (4)
  1. ARIPIPRAZOLE [Suspect]
     Active Substance: ARIPIPRAZOLE
     Indication: Major depression
     Dosage: 1 TABLET ORAL ?
     Route: 048
     Dates: start: 20240828, end: 20241031
  2. LISDEXAMFETAMINE [Concomitant]
     Active Substance: LISDEXAMFETAMINE
  3. LAMOTRIGINE [Concomitant]
     Active Substance: LAMOTRIGINE
  4. VITAMINS [Concomitant]
     Active Substance: VITAMINS

REACTIONS (2)
  - Compulsive shopping [None]
  - Binge eating [None]

NARRATIVE: CASE EVENT DATE: 20240828
